FAERS Safety Report 17036117 (Version 1)
Quarter: 2019Q4

REPORT INFORMATION
  Report Type: Spontaneous
  Country: US (occurrence: US)
  Receive Date: 20191114
  Receipt Date: 20191114
  Transmission Date: 20200122
  Serious: Yes (Other)
  Sender: FDA-Public Use
  Company Number: None

PATIENT
  Age: 44 Year
  Sex: Female
  Weight: 67.5 kg

DRUGS (2)
  1. MULTI-VITAMIN [Concomitant]
     Active Substance: .ALPHA.-TOCOPHEROL ACETATE, DL-\ASCORBIC ACID\CYANOCOBALAMIN\FLUORIDE ION\FOLIC ACID\NIACIN\PYRIDOXINE\RIBOFLAVIN\THIAMINE\VITAMIN A\VITAMIN D
  2. DUPIXENT [Suspect]
     Active Substance: DUPILUMAB
     Indication: ECZEMA

REACTIONS (11)
  - Emotional disorder [None]
  - Injection site erythema [None]
  - Chills [None]
  - Nausea [None]
  - Pain [None]
  - Injection site pain [None]
  - Syncope [None]
  - Menstrual disorder [None]
  - Pyrexia [None]
  - Hyperhidrosis [None]
  - Injection site reaction [None]

NARRATIVE: CASE EVENT DATE: 20191030
